FAERS Safety Report 7361222-3 (Version None)
Quarter: 2011Q1

REPORT INFORMATION
  Report Type: 
  Country: None (occurrence: None)
  Receive Date: 20110318
  Receipt Date: 20110224
  Transmission Date: 20110831
  Serious: No
  Sender: FDA-Public Use
  Company Number: US-BAYER-2011-018498

PATIENT
  Sex: Female

DRUGS (5)
  1. DARVOCET [Concomitant]
     Indication: PAIN
  2. TAXOTERE [Concomitant]
  3. STEROID ANTIBACTERIALS [Concomitant]
  4. UNCODEABLE ^UNCLASSIFIABLE^ [Concomitant]
  5. ALEVE (CAPLET) [Suspect]
     Indication: PAIN
     Route: 048

REACTIONS (1)
  - PAIN [None]
